FAERS Safety Report 9846234 (Version 17)
Quarter: 2018Q4

REPORT INFORMATION
  Report Type: Report from Study
  Country: US (occurrence: US)
  Receive Date: 20140127
  Receipt Date: 20181019
  Transmission Date: 20190205
  Serious: Yes (Hospitalization, Congenital Anomaly, Other)
  Sender: FDA-Public Use
  Company Number: US-SA-2013SA134911

PATIENT
  Age: 62 Year
  Sex: Female
  Weight: 81.6 kg

DRUGS (26)
  1. TERIFLUNOMIDE. [Suspect]
     Active Substance: TERIFLUNOMIDE
     Dosage: 14 MG,QOD
     Route: 048
  2. SPIRONOLACTONE. [Concomitant]
     Active Substance: SPIRONOLACTONE
     Indication: FLUID RETENTION
     Dosage: UNK
  3. MOMETASONE FUROATE. [Concomitant]
     Active Substance: MOMETASONE FUROATE
     Indication: HYPERSENSITIVITY
     Dosage: UNK UNK,BID
  4. DILTIAZEM. [Concomitant]
     Active Substance: DILTIAZEM
     Indication: HYPERTENSION
     Dosage: 120 MG,UNK
     Route: 048
     Dates: start: 20030101
  5. NITROSTAT [Concomitant]
     Active Substance: NITROGLYCERIN
     Indication: CHEST PAIN
     Dosage: UNK UNK,PRN
  6. DULERA [Concomitant]
     Active Substance: FORMOTEROL FUMARATE DIHYDRATE\MOMETASONE FUROATE
     Indication: ASTHMA
     Dosage: UNK
  7. AZELASTINE. [Concomitant]
     Active Substance: AZELASTINE HYDROCHLORIDE
     Indication: HYPERSENSITIVITY
     Dosage: UNK UNK,BID
  8. ZOLPIDEM [Concomitant]
     Active Substance: ZOLPIDEM\ZOLPIDEM TARTRATE
     Indication: BACK PAIN
     Dosage: UNK UNK,PRN
  9. RANEXA [Concomitant]
     Active Substance: RANOLAZINE
     Indication: ANGINA PECTORIS
     Dosage: UNK
  10. PREDNISONE. [Concomitant]
     Active Substance: PREDNISONE
     Indication: HYPERSENSITIVITY
     Dosage: 10 MG,UNK
     Route: 048
     Dates: start: 20130819
  11. BAYASPIRIN [Concomitant]
     Active Substance: ASPIRIN
     Indication: PROPHYLAXIS
     Dosage: 81 MG,UNK
     Route: 048
     Dates: start: 20030101
  12. SYMBICORT [Concomitant]
     Active Substance: BUDESONIDE\FORMOTEROL FUMARATE DIHYDRATE
     Indication: ASTHMA
     Dosage: UNK UNK,PRN
  13. TERIFLUNOMIDE. [Suspect]
     Active Substance: TERIFLUNOMIDE
     Indication: MULTIPLE SCLEROSIS
     Dosage: 14 MG,QD
     Route: 048
     Dates: start: 20130806
  14. TERIFLUNOMIDE. [Suspect]
     Active Substance: TERIFLUNOMIDE
     Dosage: 14 MG,QD
     Route: 048
  15. SIMVASTATIN. [Concomitant]
     Active Substance: SIMVASTATIN
     Indication: BLOOD CHOLESTEROL INCREASED
     Dosage: 10 MG,UNK
     Route: 048
     Dates: start: 20110101
  16. ZYRTEC [Concomitant]
     Active Substance: CETIRIZINE HYDROCHLORIDE
     Indication: HYPERSENSITIVITY
     Dosage: UNK UNK,QD
  17. METHOCARBAMOL. [Concomitant]
     Active Substance: METHOCARBAMOL
     Dosage: UNK UNK,PRN
  18. ALBUTEROL SULFATE. [Concomitant]
     Active Substance: ALBUTEROL SULFATE
     Indication: ASTHMA
     Dosage: 1.25 MG,UNK
     Route: 055
     Dates: start: 20121212
  19. HYDROCHLOROTHIAZIDE. [Concomitant]
     Active Substance: HYDROCHLOROTHIAZIDE
     Indication: DIURETIC THERAPY
     Dosage: UNK UNK,QD
     Route: 048
     Dates: start: 20050101
  20. LIDODERM [Concomitant]
     Active Substance: LIDOCAINE
     Dosage: UNK UNK,PRN
  21. POTASSIUM [Concomitant]
     Active Substance: POTASSIUM
     Indication: NUTRITIONAL SUPPLEMENTATION
     Dosage: 75 MG,UNK
     Route: 048
     Dates: start: 20090101
  22. ADVAIR HFA [Concomitant]
     Active Substance: FLUTICASONE PROPIONATE\SALMETEROL XINAFOATE
     Indication: ASTHMA
     Dosage: DOSE: 250-50 MCG
     Route: 055
     Dates: start: 20121212
  23. OMEPRAZOLE. [Concomitant]
     Active Substance: OMEPRAZOLE
     Indication: GASTRIC DISORDER
     Dosage: 25 MG,QOD
  24. LAMOTRIGINE. [Concomitant]
     Active Substance: LAMOTRIGINE
     Indication: NEURALGIA
     Dosage: 25 MG,UNK
  25. MYRBETRIQ [Concomitant]
     Active Substance: MIRABEGRON
     Indication: CYSTITIS
     Dosage: UNK
  26. TRAMADOL HYDROCHLORIDE. [Concomitant]
     Active Substance: TRAMADOL HYDROCHLORIDE
     Dosage: UNK UNK,PRN

REACTIONS (38)
  - Ankle fracture [Unknown]
  - Tremor [Recovering/Resolving]
  - Atrioventricular block [Unknown]
  - Multiple sclerosis relapse [Recovering/Resolving]
  - Excessive eye blinking [Recovering/Resolving]
  - Congenital intestinal malformation [Unknown]
  - Weight decreased [Unknown]
  - Alopecia [Not Recovered/Not Resolved]
  - Nausea [Recovered/Resolved]
  - Muscular weakness [Not Recovered/Not Resolved]
  - Limb discomfort [Not Recovered/Not Resolved]
  - Burning sensation [Not Recovered/Not Resolved]
  - Pain of skin [Recovered/Resolved]
  - Multiple sclerosis relapse [Recovered/Resolved]
  - Glaucoma [Not Recovered/Not Resolved]
  - Paraesthesia [Unknown]
  - Burning sensation [Not Recovered/Not Resolved]
  - Asthenia [Not Recovered/Not Resolved]
  - Burning sensation [Not Recovered/Not Resolved]
  - Bronchitis [Recovering/Resolving]
  - Memory impairment [Unknown]
  - Aphasia [Not Recovered/Not Resolved]
  - Hypertension [Recovered/Resolved]
  - Abdominal pain upper [Unknown]
  - Eye swelling [Recovering/Resolving]
  - Laryngeal inflammation [Unknown]
  - Vomiting [Recovered/Resolved]
  - Influenza [Unknown]
  - Fatigue [Not Recovered/Not Resolved]
  - Product dose omission [Unknown]
  - Intentional product misuse [Unknown]
  - Balance disorder [Not Recovered/Not Resolved]
  - Limb discomfort [Recovered/Resolved]
  - Fall [Unknown]
  - Pain [Unknown]
  - Chest pain [Unknown]
  - Dizziness [Unknown]
  - Nasopharyngitis [Recovering/Resolving]

NARRATIVE: CASE EVENT DATE: 2013
